FAERS Safety Report 8035120-6 (Version None)
Quarter: 2012Q1

REPORT INFORMATION
  Report Type: 
  Country: None (occurrence: None)
  Receive Date: 20120111
  Receipt Date: 20120104
  Transmission Date: 20120608
  Serious: Yes (Death, Hospitalization)
  Sender: FDA-Public Use
  Company Number: US-BIOGENIDEC-2011BI041316

PATIENT
  Age: 66 Year
  Sex: Female

DRUGS (1)
  1. AVONEX [Suspect]
     Indication: MULTIPLE SCLEROSIS
     Route: 030
     Dates: start: 20070101, end: 20110905

REACTIONS (5)
  - MYOCARDIAL INFARCTION [None]
  - CYSTITIS [None]
  - PNEUMONIA [None]
  - GENERAL PHYSICAL HEALTH DETERIORATION [None]
  - DRUG INEFFECTIVE [None]
